FAERS Safety Report 14716717 (Version 1)
Quarter: 2018Q2

REPORT INFORMATION
  Report Type: Spontaneous
  Country: AU (occurrence: AU)
  Receive Date: 20180404
  Receipt Date: 20180404
  Transmission Date: 20180711
  Serious: Yes (Other)
  Sender: FDA-Public Use
  Company Number: AU-PFIZER INC-2018135497

PATIENT
  Sex: Female

DRUGS (1)
  1. CHAMPIX [Suspect]
     Active Substance: VARENICLINE TARTRATE
     Dosage: UNK

REACTIONS (6)
  - Breast pain [Unknown]
  - Blood oestrogen increased [Unknown]
  - Metastases to bone [Unknown]
  - Breast adenoma [Unknown]
  - Breast enlargement [Unknown]
  - Breast cancer stage IV [Unknown]
